FAERS Safety Report 19637702 (Version 1)
Quarter: 2021Q3

REPORT INFORMATION
  Report Type: Spontaneous
  Country: CA (occurrence: CA)
  Receive Date: 20210730
  Receipt Date: 20210730
  Transmission Date: 20211014
  Serious: Yes (Other)
  Sender: FDA-Public Use
  Company Number: CA-ALVOGEN-2021-ALVOGEN-117269

PATIENT
  Age: 24760 Day
  Sex: Female
  Weight: 104 kg

DRUGS (2)
  1. INFLECTRA [Suspect]
     Active Substance: INFLIXIMAB-DYYB
     Indication: CROHN^S DISEASE
     Route: 041
     Dates: start: 20210204
  2. LISINOPRIL. [Suspect]
     Active Substance: LISINOPRIL
     Indication: PRODUCT USED FOR UNKNOWN INDICATION
     Route: 048

REACTIONS (6)
  - Fatigue [Recovering/Resolving]
  - Pneumonia [Recovering/Resolving]
  - Chest pain [Recovering/Resolving]
  - Off label use [Unknown]
  - Pain [Unknown]
  - Cataract [Unknown]

NARRATIVE: CASE EVENT DATE: 20210330
